FAERS Safety Report 7459624-X (Version None)
Quarter: 2011Q2

REPORT INFORMATION
  Report Type: 
  Country: None (occurrence: None)
  Receive Date: 20110505
  Receipt Date: 20110425
  Transmission Date: 20111010
  Serious: No
  Sender: FDA-Public Use
  Company Number: PHHY2011US34882

PATIENT
  Sex: Male
  Weight: 79.365 kg

DRUGS (5)
  1. TASIGNA [Suspect]
     Dosage: 300 MG, BID
     Route: 048
  2. LEVOBUNOLOL [Concomitant]
     Dosage: 0.5 %, UNK
  3. HYDROCODONE BITARTRATE [Concomitant]
  4. FUROSEMIDE [Concomitant]
     Dosage: 20 MG, UNK
  5. LEVOTHYROXINE SODIUM [Concomitant]
     Dosage: 175 UG, UNK

REACTIONS (1)
  - ALOPECIA [None]
